FAERS Safety Report 5449253-1 (Version None)
Quarter: 2007Q3

REPORT INFORMATION
  Report Type: 
  Country: None (occurrence: None)
  Receive Date: 20070911
  Receipt Date: 20070830
  Transmission Date: 20080115
  Serious: Yes (Other)
  Sender: FDA-Public Use
  Company Number: CA-SHR-CA-2007-020222

PATIENT
  Age: 39 Year
  Sex: Female
  Weight: 73 kg

DRUGS (2)
  1. BETASERON [Suspect]
     Indication: RELAPSING-REMITTING MULTIPLE SCLEROSIS
     Dosage: 8 MIU, EVERY 2D
     Route: 058
     Dates: start: 20000210
  2. HERCEPTIN [Concomitant]
     Route: 042

REACTIONS (1)
  - BREAST CANCER FEMALE [None]
